FAERS Safety Report 11419880 (Version 1)
Quarter: 2015Q3

REPORT INFORMATION
  Report Type: Spontaneous
  Country: US (occurrence: US)
  Receive Date: 20150826
  Receipt Date: 20150826
  Transmission Date: 20151125
  Serious: Yes (Death, Hospitalization)
  Sender: FDA-Public Use
  Company Number: US-SA-2015SA128989

PATIENT
  Age: 75 Year
  Sex: Male

DRUGS (4)
  1. FLUOROURACIL. [Suspect]
     Active Substance: FLUOROURACIL
     Indication: GASTRIC CANCER STAGE IV
     Dosage: CONTINUOUS INFUSION OVER 24 HOUR DAILY ON DAY 1 AND 2 EVERY 14 DAYS
     Route: 042
     Dates: start: 2015
  2. LEUCOVORIN. [Suspect]
     Active Substance: LEUCOVORIN
     Indication: GASTRIC CANCER STAGE IV
     Dosage: ON DAY 1 OF 14 DAY CYCLE
     Route: 042
     Dates: start: 2015
  3. FLUOROURACIL. [Suspect]
     Active Substance: FLUOROURACIL
     Indication: GASTRIC CANCER STAGE IV
     Dosage: 400 MG/M2 PUSH ON DAY 1 OF 14 DAY CYCLE
     Route: 042
     Dates: start: 2015
  4. OXALIPLATIN. [Suspect]
     Active Substance: OXALIPLATIN
     Indication: GASTRIC CANCER STAGE IV
     Dosage: ON DAY 1 OF A 14 DAY CYCLE
     Route: 042
     Dates: start: 2015

REACTIONS (7)
  - Diarrhoea [Fatal]
  - Pneumoperitoneum [Fatal]
  - Localised intraabdominal fluid collection [Fatal]
  - Decreased appetite [Fatal]
  - Gastrointestinal perforation [Fatal]
  - Cardiac arrest [Fatal]
  - Abdominal pain [Fatal]

NARRATIVE: CASE EVENT DATE: 2015
